FAERS Safety Report 7366467-4 (Version None)
Quarter: 2011Q1

REPORT INFORMATION
  Report Type: 
  Country: None (occurrence: None)
  Receive Date: 20110317
  Receipt Date: 20110317
  Transmission Date: 20110831
  Serious: Yes (Hospitalization)
  Sender: FDA-Public Use
  Company Number: None

PATIENT
  Age: 81 Year
  Sex: Female

DRUGS (5)
  1. REVLIMID [Suspect]
     Indication: MULTIPLE MYELOMA
     Dosage: REVLIMID 15MG DAILY X21D/28D ORALLY
     Route: 048
     Dates: start: 20090901, end: 20101101
  2. ASPIRIN [Concomitant]
  3. ALENDRONATE [Concomitant]
  4. DEXAMETHASONE [Concomitant]
  5. GABAPENTIN [Concomitant]

REACTIONS (1)
  - RADIATION SICKNESS SYNDROME [None]
